FAERS Safety Report 10142667 (Version 1)
Quarter: 2014Q2

REPORT INFORMATION
  Report Type: Spontaneous
  Country: GB (occurrence: None)
  Receive Date: 20140425
  Receipt Date: 20140425
  Transmission Date: 20141212
  Serious: Yes (Hospitalization, Other)
  Sender: FDA-Public Use
  Company Number: FK201401369

PATIENT
  Age: 67 Year
  Sex: Male

DRUGS (16)
  1. FUROSEMIDE (FUROSEMIDE) [Suspect]
     Indication: EJECTION FRACTION ABNORMAL
     Route: 048
  2. EPLERENONE [Suspect]
     Indication: EJECTION FRACTION ABNORMAL
     Route: 048
  3. ORAMORPH [Suspect]
     Indication: BACK PAIN
     Route: 048
  4. RAMIPRIL (RAMIPRIL) [Suspect]
     Indication: EJECTION FRACTION ABNORMAL
     Route: 048
  5. ZOMORPH [Suspect]
     Indication: BACK PAIN
     Route: 048
  6. ALLOPURINOL (ALLOPURINOL) [Concomitant]
  7. AMITRIPTYLINE (AMITRIPTYLINE) [Concomitant]
  8. ATORVASTATIN (ATORVASTATIN) [Concomitant]
  9. BISOPROLOL (BISOPROLOL) [Concomitant]
  10. DIGOXIN (DIGOXIN) [Concomitant]
  11. METFORMIN (METFORMIN) [Concomitant]
  12. NOVOMIX (NOVOMIX) [Concomitant]
  13. RANITIDINE (RANITIDINE) [Concomitant]
  14. SAXAGLIPTIN (SAXAGLIPTIN) [Concomitant]
  15. VICTOZA (LIRAGLUTIDE) [Concomitant]
  16. WARFARIN (WARFARIN) [Concomitant]

REACTIONS (9)
  - Escherichia sepsis [None]
  - Toxicity to various agents [None]
  - Renal failure acute [None]
  - Lethargy [None]
  - Vomiting [None]
  - Vomiting [None]
  - Fluid intake reduced [None]
  - Cardiac failure [None]
  - Nephropathy toxic [None]
